FAERS Safety Report 4936981-7 (Version None)
Quarter: 2006Q1

REPORT INFORMATION
  Report Type: 
  Country: None (occurrence: None)
  Receive Date: 20060309
  Receipt Date: 20060207
  Transmission Date: 20060701
  Serious: Yes (Death, Hospitalization)
  Sender: FDA-Public Use
  Company Number: IT-ROCHE-435164

PATIENT
  Age: 70 Year
  Sex: Female
  Weight: 43 kg

DRUGS (3)
  1. CAPECITABINE [Suspect]
     Dosage: ON DAYS 2-15 EVERY 3 WEEKS (Q3W).
     Route: 048
     Dates: start: 20060126, end: 20060207
  2. BEVACIZUMAB [Suspect]
     Route: 042
     Dates: start: 20060125, end: 20060207
  3. IRINOTECAN HCL [Suspect]
     Route: 042
     Dates: start: 20060125, end: 20060207

REACTIONS (1)
  - GASTROINTESTINAL PERFORATION [None]
